FAERS Safety Report 17894477 (Version 2)
Quarter: 2020Q3

REPORT INFORMATION
  Report Type: Report from Study
  Country: SI (occurrence: SI)
  Receive Date: 20200615
  Receipt Date: 20200717
  Transmission Date: 20201103
  Serious: Yes (Other)
  Sender: FDA-Public Use
  Company Number: SI-TAKEDA-2020TUS026315

PATIENT
  Age: 65 Year
  Sex: Male

DRUGS (3)
  1. METHYLPREDNISOLONE. [Suspect]
     Active Substance: METHYLPREDNISOLONE
     Indication: NON-HODGKIN^S LYMPHOMA
     Dosage: UNK
     Route: 065
  2. BORTEZOMIB. [Suspect]
     Active Substance: BORTEZOMIB
     Indication: NON-HODGKIN^S LYMPHOMA
     Dosage: UNK
     Route: 065
  3. RITUXIMAB. [Suspect]
     Active Substance: RITUXIMAB
     Indication: NON-HODGKIN^S LYMPHOMA
     Dosage: UNK
     Route: 041

REACTIONS (8)
  - Lymphopenia [Unknown]
  - Borrelia infection [Recovering/Resolving]
  - Lyme disease [Recovering/Resolving]
  - Product use in unapproved indication [Unknown]
  - Blood immunoglobulin A decreased [Unknown]
  - Hepatic enzyme increased [Unknown]
  - Blood immunoglobulin G decreased [Unknown]
  - Off label use [Unknown]
